FAERS Safety Report 19118810 (Version 3)
Quarter: 2021Q3

REPORT INFORMATION
  Report Type: Other
  Country: JP (occurrence: JP)
  Receive Date: 20210409
  Receipt Date: 20210817
  Transmission Date: 20211014
  Serious: Yes (Other)
  Sender: FDA-Public Use
  Company Number: JP-ROCHE-2808154

PATIENT

DRUGS (3)
  1. GEMCITABINE. [Suspect]
     Active Substance: GEMCITABINE
     Indication: OVARIAN CLEAR CELL CARCINOMA
     Dosage: ON DAY 1 AND 15, EVERY 4 WEEKS AS ONE CYCLE
     Route: 042
  2. BEVACIZUMAB. [Suspect]
     Active Substance: BEVACIZUMAB
     Indication: OVARIAN CLEAR CELL CARCINOMA
     Dosage: ON DAY 1, WITH THE CYCLE REPEATED EVERY 4 WEEKS
     Route: 042
  3. CISPLATIN. [Suspect]
     Active Substance: CISPLATIN
     Indication: OVARIAN CLEAR CELL CARCINOMA
     Dosage: ON DAY 1 AND 15, EVERY 4 WEEKS AS ONE CYCLE
     Route: 042

REACTIONS (16)
  - Nausea [Unknown]
  - Gamma-glutamyltransferase increased [Unknown]
  - Alopecia [Unknown]
  - Neutropenia [Unknown]
  - Hypersensitivity [Unknown]
  - Hyperkalaemia [Unknown]
  - Thrombocytopenia [Unknown]
  - Neuropathy peripheral [Unknown]
  - Leukopenia [Unknown]
  - Hypertension [Unknown]
  - Anaemia [Unknown]
  - Deep vein thrombosis [Unknown]
  - Decreased appetite [Unknown]
  - Rectal perforation [Unknown]
  - Proteinuria [Unknown]
  - Acute kidney injury [Unknown]
